FAERS Safety Report 12052435 (Version 1)
Quarter: 2016Q1

REPORT INFORMATION
  Report Type: Spontaneous
  Country: US (occurrence: US)
  Receive Date: 20160209
  Receipt Date: 20160209
  Transmission Date: 20160526
  Serious: No
  Sender: FDA-Public Use
  Company Number: US-NOVOPROD-460851

PATIENT
  Age: 41 Year
  Sex: Female
  Weight: 82 kg

DRUGS (1)
  1. NOVOSEVEN [Suspect]
     Active Substance: COAGULATION FACTOR VIIA RECOMBINANT HUMAN
     Indication: POST PROCEDURAL HAEMORRHAGE
     Dosage: 6000 ?G, SINGLE
     Route: 042
     Dates: start: 20150814, end: 20150814

REACTIONS (3)
  - Off label use [Recovered/Resolved]
  - Infusion site extravasation [Recovering/Resolving]
  - Ischaemia [Recovering/Resolving]

NARRATIVE: CASE EVENT DATE: 20150814
